FAERS Safety Report 8489268-2 (Version None)
Quarter: 2012Q3

REPORT INFORMATION
  Report Type: 
  Country: None (occurrence: None)
  Receive Date: 20120705
  Receipt Date: 20120628
  Transmission Date: 20120928
  Serious: No
  Sender: FDA-Public Use
  Company Number: US-PFIZER INC-2012156230

PATIENT
  Sex: Female

DRUGS (2)
  1. FELDENE [Suspect]
     Indication: PROCEDURAL PAIN
     Dosage: UNK
     Dates: start: 19860101, end: 19860101
  2. VOLTAREN [Suspect]
     Dosage: UNK

REACTIONS (2)
  - DIZZINESS [None]
  - EAR CONGESTION [None]
